FAERS Safety Report 5118070-4 (Version None)
Quarter: 2006Q3

REPORT INFORMATION
  Report Type: 
  Country: None (occurrence: None)
  Receive Date: 20060929
  Receipt Date: 20060927
  Transmission Date: 20061208
  Serious: Yes (Other)
  Sender: FDA-Public Use
  Company Number: FR-MERCK-0609FRA00070

PATIENT
  Age: 14 Year
  Sex: Male

DRUGS (4)
  1. SINGULAIR [Suspect]
     Indication: ASTHMA
     Route: 048
     Dates: start: 20051026, end: 20060825
  2. LORATADINE [Concomitant]
     Route: 065
  3. FLUTICASONE PROPIONATE AND SALMETEROL XINAFOATE [Concomitant]
     Indication: ASTHMA
     Route: 055
  4. ALBUTEROL SULFATE [Concomitant]
     Route: 055

REACTIONS (1)
  - PETIT MAL EPILEPSY [None]
